FAERS Safety Report 16730767 (Version 1)
Quarter: 2019Q3

REPORT INFORMATION
  Report Type: Spontaneous
  Country: US (occurrence: US)
  Receive Date: 20190822
  Receipt Date: 20190822
  Transmission Date: 20191005
  Serious: No
  Sender: FDA-Public Use
  Company Number: US-SUNOVION-2019SUN003394

PATIENT

DRUGS (2)
  1. SEROQUEL [Concomitant]
     Active Substance: QUETIAPINE FUMARATE
     Dosage: 20 MG
  2. LATUDA [Suspect]
     Active Substance: LURASIDONE HYDROCHLORIDE
     Dosage: 20 MG
     Route: 048

REACTIONS (3)
  - Restlessness [Unknown]
  - Drug ineffective [Unknown]
  - Anxiety [Unknown]
